FAERS Safety Report 9877308 (Version 3)
Quarter: 2014Q1

REPORT INFORMATION
  Report Type: Spontaneous
  Country: DE (occurrence: DE)
  Receive Date: 20140206
  Receipt Date: 20140305
  Transmission Date: 20141002
  Serious: Yes (Hospitalization, Other)
  Sender: FDA-Public Use
  Company Number: DE-ASTELLAS-2014US001096

PATIENT
  Age: 42 Year
  Sex: Male

DRUGS (1)
  1. AMBISOME [Suspect]
     Indication: EYE INFECTION FUNGAL
     Dosage: UNK
     Route: 042
     Dates: start: 20140123, end: 20140123

REACTIONS (6)
  - Muscle spasms [Recovered/Resolved]
  - Muscle spasms [Recovered/Resolved]
  - Chest pain [Recovered/Resolved]
  - Chest pain [Recovered/Resolved]
  - Dyspnoea [Recovered/Resolved]
  - Back pain [Recovered/Resolved]
